FAERS Safety Report 18711785 (Version 2)
Quarter: 2022Q3

REPORT INFORMATION
  Report Type: Spontaneous
  Country: FR (occurrence: FR)
  Receive Date: 20210107
  Receipt Date: 20220907
  Transmission Date: 20221027
  Serious: Yes (Life-Threatening, Hospitalization)
  Sender: FDA-Public Use
  Company Number: None

PATIENT
  Age: 66 Year
  Sex: Male

DRUGS (3)
  1. KEYTRUDA [Suspect]
     Active Substance: PEMBROLIZUMAB
     Indication: Lung neoplasm malignant
     Dosage: UNKNOWN AT THE TIME OF THE REPORT, THERAPY START : 16-NOV-2020 : 1ST CYCLE. THERAPY END: 25-NOV-2020
     Route: 051
     Dates: start: 20201116, end: 20201125
  2. PACLITAXEL [Suspect]
     Active Substance: PACLITAXEL
     Indication: Lung neoplasm malignant
     Dosage: UNKNOWN AT THE TIME OF THE REPORT, THERAPY START : 16-NOV-2020 : 1ST CYCLE. THERAPY END: 25-NOV-2020
     Route: 051
     Dates: start: 20201116, end: 20201125
  3. CARBOPLATIN [Suspect]
     Active Substance: CARBOPLATIN
     Indication: Lung neoplasm malignant
     Dosage: UNKNOWN AT THE TIME OF THE REPORT, THERAPY START : 16-NOV-2020 : 1ST CYCLE. THERAPY END: 25-NOV-2020
     Route: 051
     Dates: start: 20201116, end: 20201125

REACTIONS (2)
  - Cardio-respiratory arrest [Recovered/Resolved]
  - Anaphylactic shock [Recovered/Resolved]

NARRATIVE: CASE EVENT DATE: 20201125
